FAERS Safety Report 8814077 (Version 1)
Quarter: 2012Q4

REPORT INFORMATION
  Report Type: Spontaneous
  Country: DE (occurrence: None)
  Receive Date: 20120925
  Receipt Date: 20120925
  Transmission Date: 20130627
  Serious: Yes (Other)
  Sender: FDA-Public Use
  Company Number: TPA2012A07000

PATIENT
  Age: 4 Decade
  Sex: Female

DRUGS (2)
  1. ADENURIC [Suspect]
     Indication: GOUT
     Route: 048
     Dates: start: 20110517
  2. CARBIMAZOLE [Suspect]
     Indication: BASEDOW^S DISEASE
     Dates: start: 20120803, end: 20120903

REACTIONS (3)
  - Basedow^s disease [None]
  - Alanine aminotransferase increased [None]
  - Aspartate aminotransferase increased [None]
